FAERS Safety Report 6771872-0 (Version None)
Quarter: 2010Q2

REPORT INFORMATION
  Report Type: 
  Country: None (occurrence: None)
  Receive Date: 20100616
  Receipt Date: 20091201
  Transmission Date: 20101027
  Serious: No
  Sender: FDA-Public Use
  Company Number: US-ASTRAZENECA-2009SE29758

PATIENT
  Age: 26 Year
  Sex: Male

DRUGS (2)
  1. ENTOCORT EC [Suspect]
     Dosage: ONE DOSE
     Route: 048
     Dates: start: 20091130
  2. ENTOCORT EC [Suspect]
     Dosage: ONE DOSE
     Route: 048
     Dates: start: 20091201

REACTIONS (1)
  - LIPASE INCREASED [None]
